FAERS Safety Report 5573886-5 (Version None)
Quarter: 2007Q4

REPORT INFORMATION
  Report Type: 
  Country: None (occurrence: None)
  Receive Date: 20071226
  Receipt Date: 20071214
  Transmission Date: 20080405
  Serious: Yes (Other)
  Sender: FDA-Public Use
  Company Number: US-PFIZER INC-2007105960

PATIENT
  Sex: Female
  Weight: 83.9 kg

DRUGS (5)
  1. CHANTIX [Suspect]
     Indication: SMOKING CESSATION THERAPY
  2. DILANTIN [Concomitant]
     Indication: CONVULSION
  3. PRILOSEC [Concomitant]
     Indication: GASTROOESOPHAGEAL REFLUX DISEASE
  4. ZYPREXA [Concomitant]
     Indication: MENTAL DISORDER
  5. GEODON [Concomitant]
     Indication: MENTAL DISORDER

REACTIONS (4)
  - ASTHENIA [None]
  - FACIAL BONES FRACTURE [None]
  - FALL [None]
  - SOMNOLENCE [None]
